FAERS Safety Report 17017408 (Version 3)
Quarter: 2019Q4

REPORT INFORMATION
  Report Type: Report from Study
  Country: US (occurrence: US)
  Receive Date: 20191111
  Receipt Date: 20191212
  Transmission Date: 20200122
  Serious: Yes (Other)
  Sender: FDA-Public Use
  Company Number: US-PFIZER INC-2019448061

PATIENT
  Age: 44 Year
  Sex: Female

DRUGS (4)
  1. IBRANCE [Suspect]
     Active Substance: PALBOCICLIB
     Dosage: 100 MG, CYCLIC (100 MG, DAILY FOR 21 DAYS ON, 7 DAYS OFF)
     Route: 048
     Dates: start: 20191009, end: 20191023
  2. IBRANCE [Suspect]
     Active Substance: PALBOCICLIB
     Dosage: 100 MG, CYCLIC;(DAILY 21 DAYS ON, 7 DAYS OFF)
     Route: 048
  3. IBRANCE [Suspect]
     Active Substance: PALBOCICLIB
     Indication: BREAST CANCER FEMALE
     Dosage: 100 MG, CYCLIC (100 MG, DAILY FOR 21 DAYS ON, 7 DAYS OFF)
     Route: 048
     Dates: start: 20190907, end: 20191005
  4. IBRANCE [Suspect]
     Active Substance: PALBOCICLIB
     Dosage: 100 MG, CYCLIC (100MG QD (ONCE A DAY) FOR 14 DAYS OF A DAYS OF A 28 CYCLE)
     Route: 048
     Dates: start: 20191107

REACTIONS (12)
  - Vomiting [Unknown]
  - Taste disorder [Not Recovered/Not Resolved]
  - Cough [Unknown]
  - Panic attack [Recovering/Resolving]
  - Device related infection [Recovered/Resolved]
  - Bone marrow failure [Unknown]
  - Nausea [Not Recovered/Not Resolved]
  - Pleural effusion [Unknown]
  - Product dose omission [Unknown]
  - Anaemia [Unknown]
  - Leukopenia [Unknown]
  - Thrombocytopenia [Unknown]

NARRATIVE: CASE EVENT DATE: 2019
